FAERS Safety Report 5005984-9 (Version None)
Quarter: 2006Q2

REPORT INFORMATION
  Report Type: 
  Country: None (occurrence: None)
  Receive Date: 20060517
  Receipt Date: 20060517
  Transmission Date: 20061013
  Serious: Yes (Other)
  Sender: FDA-Public Use
  Company Number: None

PATIENT
  Sex: Male
  Weight: 96.344 kg

DRUGS (1)
  1. ORAL SODIUM PHOSPHATE [Suspect]
     Indication: COLONOSCOPY
     Dates: start: 20051119, end: 20051120

REACTIONS (3)
  - BLOOD CREATININE INCREASED [None]
  - KIDNEY FIBROSIS [None]
  - NEPHROCALCINOSIS [None]
